FAERS Safety Report 9120453 (Version 2)
Quarter: 2013Q1

REPORT INFORMATION
  Report Type: Report from Study
  Country: DE (occurrence: DE)
  Receive Date: 20130226
  Receipt Date: 20130308
  Transmission Date: 20140127
  Serious: Yes (Death, Other)
  Sender: FDA-Public Use
  Company Number: DE-OTSUKA-EU-2012-10346

PATIENT
  Sex: Male
  Weight: 64 kg

DRUGS (103)
  1. SAMSCA [Suspect]
     Indication: INAPPROPRIATE ANTIDIURETIC HORMONE SECRETION
     Dosage: 15 MG MILLIGRAM(S), DAILY DOSE
     Route: 048
     Dates: start: 20121019, end: 20121019
  2. SAMSCA [Suspect]
     Dosage: 15 MG MILLIGRAM(S), DAILY DOSE
     Route: 048
     Dates: start: 20121026, end: 20121217
  3. SAMSCA [Suspect]
     Dosage: 15 MG MILLIGRAM(S), DAILY DOSE
     Dates: start: 20121219, end: 20130207
  4. ATACAND [Concomitant]
     Indication: HYPERTENSION
     Dosage: 32 MG MILLIGRAM(S), DAILY DOSE
     Route: 048
     Dates: end: 20121010
  5. ATACAND [Concomitant]
     Dosage: 32 MG MILLIGRAM(S), DAILY DOSE
     Route: 048
     Dates: start: 20121010, end: 20121020
  6. SALINE [Concomitant]
     Dosage: 145 MMOL MILLIMOLE(S), UNKNOWN
     Route: 065
     Dates: start: 20121018, end: 20121018
  7. SALINE [Concomitant]
     Dosage: 145 MMOL MILLIMOLE(S), UNKNOWN
     Route: 065
     Dates: start: 20121020, end: 20121020
  8. SALINE [Concomitant]
     Dosage: 145 MMOL MILLIMOLE(S), UNKNOWN
     Route: 065
     Dates: start: 20121024, end: 20121026
  9. SALINE [Concomitant]
     Dosage: 145 MMOL MILLIMOLE(S), UNKNOWN
     Route: 065
     Dates: start: 20121122, end: 20121124
  10. SALINE [Concomitant]
     Dosage: 217 MMOL MILLIMOLE(S), DAILY DOSE
     Dates: start: 20121219, end: 20121219
  11. SALINE [Concomitant]
     Dosage: 217 MMOL MILLIMOLE(S), DAILY DOSE
     Dates: start: 20130110, end: 20130110
  12. SALINE [Concomitant]
     Dosage: 145 MMOL MILLIMOLE(S), DAILY DOSE
     Dates: start: 20130208, end: 20130208
  13. SALINE [Concomitant]
     Dosage: 62 MMOL MILLIMOLE(S), UNKNOWN
     Route: 065
     Dates: start: 20121018, end: 20121018
  14. SALINE [Concomitant]
     Dosage: 77 MMOL MILLIMOLE(S), UNKNOWN
     Route: 065
     Dates: start: 20121021, end: 20121021
  15. SALINE [Concomitant]
     Dosage: 92 MMOL MILLIMOLE(S), UNKNOWN
     Route: 065
     Dates: start: 20121024, end: 20121026
  16. SALINE [Concomitant]
     Dosage: 154 MMOL MILLIMOLE(S), UNKNOWN
     Route: 065
     Dates: start: 20121119, end: 20121119
  17. SALINE [Concomitant]
     Dosage: 92 MMOL MILLIMOLE(S), UNKNOWN
     Route: 065
     Dates: start: 20121122, end: 20121124
  18. SALINE [Concomitant]
     Dosage: 77 MMOL MILLIMOLE(S), UNKNOWN
     Route: 065
     Dates: start: 20121125, end: 20121125
  19. SALINE [Concomitant]
     Dosage: 139 MMOL MILLIMOLE(S), DAILY DOSE
     Dates: start: 20121219, end: 20121219
  20. SALINE [Concomitant]
     Dosage: 139 MMOL MILLIMOLE(S), DAILY DOSE
     Dates: start: 20130110, end: 20130110
  21. SALINE [Concomitant]
     Dosage: 145 MMOL MILLIMOLE(S), UNKNOWN
     Route: 065
     Dates: start: 20130208, end: 20130208
  22. SALINE [Concomitant]
     Dosage: 154 MMOL MILLIMOLE(S), UNKNOWN
     Dates: start: 20130130, end: 20130206
  23. SALINE [Concomitant]
     Dosage: 208 MMOL MILLIMOLE(S), UNKNOWN
     Dates: start: 20130128, end: 20130128
  24. SALINE [Concomitant]
     Dosage: 258 MMOL MILLIMOLE(S), UNKNOWN
     Route: 065
     Dates: start: 20130128, end: 20130129
  25. SALINE [Concomitant]
     Dosage: 154 MMOL MILLIMOLE(S), UNKNOWN
     Route: 065
     Dates: start: 20130130, end: 20130206
  26. SALINE [Concomitant]
     Dosage: 172 MMOL MILLIMOLE(S), UNKNOWN
     Route: 065
     Dates: start: 20121018, end: 20121018
  27. SALINE [Concomitant]
     Dosage: 258 MMOL MILLIMOLE(S), UNKNOWN
     Route: 065
     Dates: start: 20130128, end: 20130129
  28. MAGNESIUM VERLA [Concomitant]
     Indication: MINERAL SUPPLEMENTATION
     Dosage: 1 DF DOSAGE FORM, DAILY DOSE
     Route: 048
     Dates: start: 20121010, end: 20130207
  29. PANTOZOL [Concomitant]
     Indication: PROPHYLAXIS
     Dosage: 40 MG MILLIGRAM(S), DAILY DOSE
     Route: 048
     Dates: start: 20121015, end: 20121019
  30. PANTOZOL [Concomitant]
     Dosage: 20 MG MILLIGRAM(S), DAILY DOSE
     Route: 048
     Dates: start: 20121020, end: 20130207
  31. NACL [Concomitant]
     Indication: HYPONATRAEMIA
     Dosage: 5600 MG MILLIGRAM(S), DAILY DOSE
     Route: 048
     Dates: start: 20121018, end: 20121019
  32. NACL [Concomitant]
     Dosage: 4200 MG MILLIGRAM(S), DAILY DOSE
     Route: 048
     Dates: start: 20121021, end: 20121113
  33. ATOSIL [Concomitant]
     Indication: AGITATION
     Dosage: 5 DF DOSAGE FORM, DAILY DOSE
     Route: 048
     Dates: start: 20121017, end: 20121017
  34. ATOSIL [Concomitant]
     Indication: DISORIENTATION
     Dosage: 10 DF DOSAGE FORM, DAILY DOSE
     Route: 048
     Dates: start: 20121018, end: 20121018
  35. ATOSIL [Concomitant]
     Indication: HYPONATRAEMIA
  36. FRAXIPARIN [Concomitant]
     Indication: THROMBOSIS PROPHYLAXIS
     Dosage: 0.3 ML MILLILITRE(S), DAILY DOSE
     Route: 058
     Dates: start: 20121010
  37. VINCRISTIN [Concomitant]
     Indication: SMALL CELL LUNG CANCER
     Dosage: 2 MG MILLIGRAM(S), DAILY DOSE
     Route: 042
     Dates: start: 20121024, end: 20121024
  38. ETOPOSIDE [Concomitant]
     Indication: SMALL CELL LUNG CANCER EXTENSIVE STAGE
     Dosage: 180 MG MILLIGRAM(S), DAILY DOSE
     Route: 042
     Dates: start: 20121024, end: 20121026
  39. ETOPOSIDE [Concomitant]
     Dosage: 180 MG MILLIGRAM(S), DAILY DOSE
     Route: 042
     Dates: start: 20121122, end: 20121124
  40. BENURON [Concomitant]
     Indication: TUMOUR PAIN
     Dosage: 500 MG MILLIGRAM(S), PRN
     Route: 048
     Dates: start: 20121011, end: 20121011
  41. VOMEX A [Concomitant]
     Indication: NAUSEA
     Dosage: 1 DF DOSAGE FORM, PRN
     Route: 054
     Dates: start: 20121018, end: 20121018
  42. VOMEX A [Concomitant]
     Indication: VOMITING
  43. KOHLE [Concomitant]
     Indication: DIARRHOEA
     Dosage: 500 MG MILLIGRAM(S), PRN
     Route: 048
     Dates: start: 20121017, end: 20121017
  44. NOVAMIN [Concomitant]
     Indication: TUMOUR PAIN
     Dosage: 30 GTT DROP(S), PRN
     Route: 048
     Dates: start: 20121024, end: 20121024
  45. NOVAMIN [Concomitant]
     Dosage: 30 GTT DROP(S), PRN
     Route: 048
     Dates: start: 20121025, end: 20121125
  46. NOVAMIN [Concomitant]
     Dosage: 60 GTT DROP(S), PRN
     Route: 048
     Dates: start: 20121114, end: 20130207
  47. LAXANS [Concomitant]
     Indication: CONSTIPATION
     Dosage: 1 DF DOSAGE FORM, PRN
     Dates: start: 20121027, end: 20121027
  48. CANDESARTAN [Concomitant]
     Indication: HYPERTENSION
     Dosage: 8 MG MILLIGRAM(S), DAILY DOSE
     Route: 048
     Dates: start: 20121118
  49. VALORON [Concomitant]
     Indication: TUMOUR PAIN
     Dosage: 2 DF DOSAGE FORM, DAILY DOSE
     Route: 048
     Dates: start: 20121116
  50. VINCRISTINE [Concomitant]
     Indication: SMALL CELL LUNG CANCER EXTENSIVE STAGE
     Dosage: 2 MG MILLIGRAM(S), DAILY DOSE
     Route: 042
     Dates: start: 20121122, end: 20121122
  51. PAMIFOS [Concomitant]
     Indication: SMALL CELL LUNG CANCER EXTENSIVE STAGE
     Dosage: 60 MG MILLIGRAM(S), DAILY DOSE
     Route: 042
     Dates: start: 20121125, end: 20121125
  52. PAMIFOS [Concomitant]
     Indication: METASTASES TO BONE
     Dosage: 60 MG MILLIGRAM(S), DAILY DOSE
     Route: 042
     Dates: start: 20130109, end: 20130109
  53. PASPERTIN [Concomitant]
     Indication: GASTROINTESTINAL DISORDER
     Dosage: 20 DF DOSAGE FORM, PRN
     Route: 048
     Dates: start: 20121017, end: 20121117
  54. ZOLPIDEM TARTRATE [Concomitant]
     Indication: SLEEP DISORDER
     Dosage: 10 MG MILLIGRAM(S), UNK
     Route: 048
     Dates: start: 20130109
  55. FORTECORTIN [Concomitant]
     Indication: PRODUCT USED FOR UNKNOWN INDICATION
     Dosage: 20 MG MILLIGRAM(S), DAILY DOSE
     Route: 048
     Dates: start: 20121217, end: 20121217
  56. FORTECORTIN [Concomitant]
     Dosage: 8 MG MILLIGRAM(S), DAILY DOSE
     Route: 048
     Dates: start: 20121218, end: 20121223
  57. FORTECORTIN [Concomitant]
     Dosage: 8 MG MILLIGRAM(S), DAILY DOSE
     Route: 042
     Dates: start: 20121219, end: 20121219
  58. FORTECORTIN [Concomitant]
     Dosage: 20 MG MILLIGRAM(S), DAILY DOSE
     Route: 048
     Dates: start: 20130109, end: 20130109
  59. FORTECORTIN [Concomitant]
     Dosage: 8 MG MILLIGRAM(S), DAILY DOSE
     Route: 048
     Dates: start: 20130111, end: 20130114
  60. TOREM [Concomitant]
     Indication: HYPERTENSION
     Dosage: 5 MG MILLIGRAM(S), DAILY DOSE
     Route: 048
     Dates: start: 20121218, end: 20130124
  61. TOREM [Concomitant]
     Dosage: 15 MG MILLIGRAM(S), DAILY DOSE
     Route: 048
     Dates: start: 20130205, end: 20130206
  62. NEULASTA [Concomitant]
     Indication: SUPPORTIVE CARE
     Dosage: 6 MG MILLIGRAM(S), DAILY DOSE
     Route: 058
     Dates: start: 20121221, end: 20121221
  63. RANTIDINE [Concomitant]
     Indication: PRODUCT USED FOR UNKNOWN INDICATION
     Dosage: 300 MG MILLIGRAM(S), DAILY DOSE
     Route: 048
     Dates: start: 20121217, end: 20121217
  64. RANTIDINE [Concomitant]
     Dosage: 300 MG MILLIGRAM(S), DAILY DOSE
     Route: 048
     Dates: start: 20121219, end: 20121223
  65. RANTIDINE [Concomitant]
     Dosage: 50 MG MILLIGRAM(S), DAILY DOSE
     Route: 042
     Dates: start: 20121219, end: 20121219
  66. RANTIDINE [Concomitant]
     Dosage: 300 MG MILLIGRAM(S), DAILY DOSE
     Route: 048
     Dates: start: 20130109, end: 20130109
  67. RANTIDINE [Concomitant]
     Dosage: 50 MG MILLIGRAM(S), DAILY DOSE
     Route: 042
     Dates: start: 20130110, end: 20130110
  68. RANTIDINE [Concomitant]
     Dosage: 300 MG MILLIGRAM(S), DAILY DOSE
     Route: 048
     Dates: start: 20130111, end: 20130114
  69. GRANISETRON [Concomitant]
     Indication: PRODUCT USED FOR UNKNOWN INDICATION
     Dosage: 3 MG MILLIGRAM(S), DAILY DOSE
     Route: 042
     Dates: start: 20121219, end: 20121219
  70. GRANISETRON [Concomitant]
     Dosage: 3 MG MILLIGRAM(S), DAILY DOSE
     Route: 042
     Dates: start: 20130110, end: 20130110
  71. TAVEGIL [Concomitant]
     Indication: PRODUCT USED FOR UNKNOWN INDICATION
     Dosage: 2 MG MILLIGRAM(S), DAILY DOSE
     Route: 042
     Dates: start: 20121219, end: 20121219
  72. TAVEGIL [Concomitant]
     Dosage: 2 MG MILLIGRAM(S), DAILY DOSE
     Route: 042
     Dates: start: 20130110, end: 20130110
  73. CARBOPLATIN [Concomitant]
     Indication: CHEMOTHERAPY
     Dosage: 420 MG MILLIGRAM(S), DAILY DOSE
     Route: 042
     Dates: start: 20121219, end: 20121219
  74. CARBOPLATIN [Concomitant]
     Dosage: 460 MG MILLIGRAM(S), DAILY DOSE
     Route: 042
     Dates: start: 20130110, end: 20130110
  75. PACLITAXEL [Concomitant]
     Indication: CHEMOTHERAPY
     Dosage: 320 MG MILLIGRAM(S), DAILY DOSE
     Route: 042
     Dates: start: 20121219, end: 20121219
  76. PACLITAXEL [Concomitant]
     Dosage: 320 MG MILLIGRAM(S), DAILY DOSE
     Route: 042
     Dates: start: 20130110, end: 20130110
  77. SALINE [Concomitant]
     Dosage: 100 ML MILLILITRE(S), UNKNOWN
     Route: 065
     Dates: start: 20121018, end: 20121018
  78. FORTECORTIN [Concomitant]
     Indication: METASTASES TO CENTRAL NERVOUS SYSTEM
     Dosage: 2 MG MILLIGRAM(S), DAILY DOSE
     Route: 048
     Dates: start: 20130125, end: 20130128
  79. FORTECORTIN [Concomitant]
     Dosage: 24 MG MILLIGRAM(S), DAILY DOSE
     Route: 048
     Dates: start: 20130130, end: 20130203
  80. FORTECORTIN [Concomitant]
     Dosage: 12 MG MILLIGRAM(S), DAILY DOSE
     Route: 048
     Dates: start: 20130204, end: 20130206
  81. FORTECORTIN [Concomitant]
     Dosage: 8 MG MILLIGRAM(S), DAILY DOSE
     Route: 048
     Dates: start: 20130208, end: 20130208
  82. FORTECORTIN [Concomitant]
     Dosage: 20 MG MILLIGRAM(S), DAILY DOSE
     Route: 048
     Dates: start: 20130207, end: 20130207
  83. IBUPROFEN [Concomitant]
     Indication: TUMOUR PAIN
     Dosage: 400 MG MILLIGRAM(S), DAILY DOSE
     Route: 048
     Dates: start: 20130125, end: 20130204
  84. IBUPROFEN [Concomitant]
     Dosage: 1200 MG MILLIGRAM(S), DAILY DOSE
     Route: 048
     Dates: start: 20130125, end: 20130204
  85. NACL [Concomitant]
     Indication: HYPONATRAEMIA
     Dosage: 2100 MG MILLIGRAM(S), DAILY DOSE
     Route: 048
     Dates: start: 20130203, end: 20130206
  86. NACL [Concomitant]
     Indication: INAPPROPRIATE ANTIDIURETIC HORMONE SECRETION
  87. OSMOFUNDIN [Concomitant]
     Indication: METASTASES TO CENTRAL NERVOUS SYSTEM
     Dosage: 250 ML MILLILITRE(S), DAILY DOSE
     Route: 042
     Dates: start: 20130130, end: 20130130
  88. OSMOFUNDIN [Concomitant]
     Dosage: 500 ML MILLILITRE(S), DAILY DOSE
     Route: 042
     Dates: start: 20130131, end: 20130203
  89. CIPROBAY [Concomitant]
     Indication: C-REACTIVE PROTEIN INCREASED
     Dosage: 400 MG MILLIGRAM(S), DAILY DOSE
     Route: 048
     Dates: start: 20130205, end: 20130206
  90. PALLADON [Concomitant]
     Indication: TUMOUR PAIN
     Dosage: 8 MG MILLIGRAM(S), DAILY DOSE
     Route: 048
     Dates: start: 20130205, end: 20130206
  91. PALLADON [Concomitant]
     Dosage: 4 MG MILLIGRAM(S), DAILY DOSE
     Route: 048
     Dates: start: 20130207, end: 20130207
  92. BENURON [Concomitant]
     Indication: TUMOUR PAIN
     Dosage: 1500 MG MILLIGRAM(S), DAILY DOSE
     Route: 048
     Dates: start: 20130205, end: 20130206
  93. BENURON [Concomitant]
     Dosage: 500 MG MILLIGRAM(S), DAILY DOSE
     Route: 048
     Dates: start: 20130207, end: 20130207
  94. ALDACTONE [Concomitant]
     Indication: OEDEMA
     Dosage: 25 MG MILLIGRAM(S), DAILY DOSE
     Route: 048
     Dates: start: 20130205, end: 20130207
  95. LASIX [Concomitant]
     Indication: POLYURIA
     Dosage: 40 MG MILLIGRAM(S), DAILY DOSE
     Route: 042
     Dates: start: 20130204, end: 20130206
  96. LASIX [Concomitant]
     Dosage: 20 MG MILLIGRAM(S), DAILY DOSE
     Route: 042
     Dates: start: 20130207, end: 20130207
  97. LASIX [Concomitant]
     Dosage: 40 MG MILLIGRAM(S), DAILY DOSE
     Route: 042
     Dates: start: 20130208, end: 20130208
  98. NACL [Concomitant]
     Indication: INAPPROPRIATE ANTIDIURETIC HORMONE SECRETION
     Dosage: 700 MG MILLIGRAM(S), DAILY DOSE
     Route: 048
     Dates: start: 20130207, end: 20130207
  99. TARGIN [Concomitant]
     Indication: TUMOUR PAIN
     Dosage: 1 DF DOSAGE FORM, DAILY DOSE
     Route: 048
     Dates: start: 20130207, end: 20130207
  100. DUROGESIC [Concomitant]
     Indication: TUMOUR PAIN
     Dosage: 25 MCG, UNKNOWN
     Route: 062
     Dates: start: 20130208, end: 20130208
  101. ZOLPIDEM [Concomitant]
     Indication: PROPHYLAXIS
     Dosage: 10 MG MILLIGRAM(S), UNKNOWN
     Route: 048
     Dates: start: 20130125, end: 20130126
  102. MORPHIN [Concomitant]
     Indication: TUMOUR PAIN
     Dosage: 5 MG MILLIGRAM(S), UNKNOWN
     Route: 058
     Dates: start: 20130208, end: 20130208
  103. MORPHIN [Concomitant]
     Dosage: 20 MG MILLIGRAM(S), UNKNOWN
     Route: 048
     Dates: start: 20130209, end: 20130209

REACTIONS (8)
  - Malignant neoplasm progression [Fatal]
  - Cardiac failure [Not Recovered/Not Resolved]
  - C-reactive protein increased [Recovering/Resolving]
  - Rapid correction of hyponatraemia [Recovered/Resolved]
  - Rapid correction of hyponatraemia [Recovered/Resolved]
  - Leukopenia [Recovered/Resolved]
  - Constipation [Recovering/Resolving]
  - Bedridden [Recovering/Resolving]
